FAERS Safety Report 10071608 (Version 1)
Quarter: 2014Q2

REPORT INFORMATION
  Report Type: Spontaneous
  Country: ES (occurrence: ES)
  Receive Date: 20140410
  Receipt Date: 20140410
  Transmission Date: 20141212
  Serious: Yes (Hospitalization)
  Sender: FDA-Public Use
  Company Number: ES-MYLANLABS-2014S1007691

PATIENT
  Age: 27 Year
  Sex: Male

DRUGS (10)
  1. THYMOGLOBULIN [Suspect]
     Indication: IMMUNOSUPPRESSANT DRUG THERAPY
     Dosage: 1.5 MG/KG; RECEIVED 2 DOSES
     Route: 065
  2. TACROLIMUS [Suspect]
     Indication: IMMUNOSUPPRESSANT DRUG THERAPY
     Dosage: 0.1 MG/KG EXTENDED-RELEASE
     Route: 065
  3. MYCOPHENOLATE MOFETIL [Suspect]
     Indication: IMMUNOSUPPRESSANT DRUG THERAPY
     Dosage: 2000MG
     Route: 065
  4. METHYLPREDNISOLONE [Suspect]
     Indication: IMMUNOSUPPRESSANT DRUG THERAPY
     Dosage: 300MG; THEN 100MG X 4 DOSES
     Route: 065
  5. METHYLPREDNISOLONE [Suspect]
     Indication: IMMUNOSUPPRESSANT DRUG THERAPY
     Dosage: 100MG X 4 DOSES
     Route: 065
  6. GANCICLOVIR [Concomitant]
     Indication: INFECTION PROPHYLAXIS
     Route: 065
  7. VANCOMYCIN [Concomitant]
     Indication: INFECTION PROPHYLAXIS
     Route: 065
  8. CEFOTAXIME [Concomitant]
     Indication: INFECTION PROPHYLAXIS
     Route: 065
  9. FLUCONAZOLE [Concomitant]
     Indication: INFECTION PROPHYLAXIS
     Route: 065
  10. COTRIMOXAZOLE [Concomitant]
     Indication: INFECTION PROPHYLAXIS
     Route: 065

REACTIONS (2)
  - Acute respiratory distress syndrome [Recovering/Resolving]
  - H1N1 influenza [Recovering/Resolving]
